FAERS Safety Report 14526735 (Version 3)
Quarter: 2018Q2

REPORT INFORMATION
  Report Type: Spontaneous
  Country: JP (occurrence: JP)
  Receive Date: 20180213
  Receipt Date: 20180411
  Transmission Date: 20180711
  Serious: Yes (Other)
  Sender: FDA-Public Use
  Company Number: JP-CELGENEUS-JPN-20180202941

PATIENT
  Age: 62 Year
  Sex: Male

DRUGS (5)
  1. METHOTREXATE. [Concomitant]
     Active Substance: METHOTREXATE
     Indication: PROPHYLAXIS AGAINST GRAFT VERSUS HOST DISEASE
     Route: 065
  2. VIDARABINE [Concomitant]
     Active Substance: VIDARABINE
     Indication: ADENOVIRUS INFECTION
     Route: 065
  3. RIBAVIRIN. [Concomitant]
     Active Substance: RIBAVIRIN
     Indication: ADENOVIRUS INFECTION
     Route: 065
  4. TACROLIMUS. [Concomitant]
     Active Substance: TACROLIMUS
     Indication: PRODUCT USED FOR UNKNOWN INDICATION
     Route: 065
  5. REVLIMID [Suspect]
     Active Substance: LENALIDOMIDE
     Indication: ADULT T-CELL LYMPHOMA/LEUKAEMIA
     Dosage: 5 MILLIGRAM
     Route: 048

REACTIONS (2)
  - Graft versus host disease in skin [Unknown]
  - Cytokine release syndrome [Unknown]
